FAERS Safety Report 4759945-5 (Version None)
Quarter: 2005Q3

REPORT INFORMATION
  Report Type: 
  Country: None (occurrence: None)
  Receive Date: 20050831
  Receipt Date: 20050815
  Transmission Date: 20060218
  Serious: Yes (Other)
  Sender: FDA-Public Use
  Company Number: US_0508121084

PATIENT
  Age: 27 Year
  Sex: Female

DRUGS (1)
  1. HUMULIN N [Suspect]

REACTIONS (5)
  - DIARRHOEA [None]
  - DRUG EXPOSURE DURING PREGNANCY [None]
  - PHARMACEUTICAL PRODUCT COMPLAINT [None]
  - PREGNANCY [None]
  - VOMITING [None]
